FAERS Safety Report 12414519 (Version 1)
Quarter: 2016Q2

REPORT INFORMATION
  Report Type: Spontaneous
  Country: FR (occurrence: FR)
  Receive Date: 20160528
  Receipt Date: 20160528
  Transmission Date: 20160815
  Serious: Yes (Other)
  Sender: FDA-Public Use
  Company Number: FR-ACCORD-041081

PATIENT
  Age: 67 Year
  Sex: Female

DRUGS (2)
  1. AMETYCINE [Suspect]
     Active Substance: MITOMYCIN
     Indication: ANAL SQUAMOUS CELL CARCINOMA
     Dosage: STRENGTH: 10 MG?TOOK SINGLE-DOSE ON 22-FEB-2016 AND THEN ON 21-MAR-2016.
     Route: 042
     Dates: start: 20160222
  2. FLUOROURACIL ACCORD [Suspect]
     Active Substance: FLUOROURACIL
     Indication: ANAL SQUAMOUS CELL CARCINOMA
     Route: 042
     Dates: start: 20160222, end: 20160225

REACTIONS (1)
  - Mucosal inflammation [Unknown]

NARRATIVE: CASE EVENT DATE: 201603
